FAERS Safety Report 6097150-3 (Version None)
Quarter: 2009Q1

REPORT INFORMATION
  Report Type: 
  Country: None (occurrence: None)
  Receive Date: 20090227
  Receipt Date: 20090220
  Transmission Date: 20090719
  Serious: Yes (Other)
  Sender: FDA-Public Use
  Company Number: US-AMGEN-QUU334937

PATIENT
  Sex: Female

DRUGS (3)
  1. ENBREL [Suspect]
     Indication: RHEUMATOID ARTHRITIS
     Route: 058
     Dates: start: 20051215
  2. HUMIRA [Concomitant]
  3. DOXYCYCLINE [Concomitant]

REACTIONS (6)
  - ABORTION INDUCED [None]
  - DRUG EXPOSURE DURING PREGNANCY [None]
  - INJECTION SITE REACTION [None]
  - LARYNGITIS [None]
  - LOWER RESPIRATORY TRACT INFECTION [None]
  - NAUSEA [None]
